FAERS Safety Report 6736351-5 (Version None)
Quarter: 2010Q2

REPORT INFORMATION
  Report Type: 
  Country: None (occurrence: None)
  Receive Date: 20100520
  Receipt Date: 20100520
  Transmission Date: 20101027
  Serious: No
  Sender: FDA-Public Use
  Company Number: None

PATIENT
  Age: 80 Year
  Sex: Male
  Weight: 106.5953 kg

DRUGS (2)
  1. LEVAQUIN [Suspect]
     Indication: BRONCHITIS
     Dosage: IV
     Route: 042
     Dates: start: 20100405, end: 20100408
  2. LEVAQUIN [Suspect]
     Indication: BRONCHITIS
     Dosage: 500 MG ONCE PER DAY PO
     Route: 048
     Dates: start: 20100409, end: 20100410

REACTIONS (2)
  - MUSCLE RUPTURE [None]
  - TENDON RUPTURE [None]
